FAERS Safety Report 17757536 (Version 1)
Quarter: 2020Q2

REPORT INFORMATION
  Report Type: Spontaneous
  Country: IL (occurrence: IL)
  Receive Date: 20200507
  Receipt Date: 20200507
  Transmission Date: 20200714
  Serious: Yes (Death)
  Sender: FDA-Public Use
  Company Number: IL-ASTRAZENECA-2019SF87960

PATIENT
  Age: 80 Year
  Sex: Female

DRUGS (1)
  1. TAGRISSO [Suspect]
     Active Substance: OSIMERTINIB
     Indication: EGFR GENE MUTATION
     Dosage: 80.0MG UNKNOWN
     Route: 048
     Dates: start: 20191107

REACTIONS (1)
  - Herpes zoster [Fatal]
